FAERS Safety Report 12145927 (Version 1)
Quarter: 2016Q1

REPORT INFORMATION
  Report Type: Spontaneous
  Country: SE (occurrence: SE)
  Receive Date: 20160304
  Receipt Date: 20160304
  Transmission Date: 20160526
  Serious: Yes (Other)
  Sender: FDA-Public Use
  Company Number: SE-JNJFOC-20160227345

PATIENT

DRUGS (1)
  1. FENTANYL. [Suspect]
     Active Substance: FENTANYL
     Indication: PRODUCT USED FOR UNKNOWN INDICATION
     Route: 062

REACTIONS (6)
  - Wrong technique in product usage process [Unknown]
  - Intentional product misuse [Unknown]
  - Suicide attempt [Unknown]
  - Intentional product use issue [Unknown]
  - Dependence [Unknown]
  - Poisoning [Unknown]
